FAERS Safety Report 11521853 (Version 1)
Quarter: 2015Q3

REPORT INFORMATION
  Report Type: Spontaneous
  Country: US (occurrence: US)
  Receive Date: 20150918
  Receipt Date: 20150918
  Transmission Date: 20151125
  Serious: Yes (Hospitalization)
  Sender: FDA-Public Use
  Company Number: US-ROCHE-749981

PATIENT
  Age: 65 Year
  Sex: Female

DRUGS (3)
  1. PEGASYS [Suspect]
     Active Substance: PEGINTERFERON ALFA-2A
     Indication: HEPATITIS C
     Route: 065
     Dates: start: 20101011, end: 20101220
  2. RIBAVIRIN. [Suspect]
     Active Substance: RIBAVIRIN
     Indication: HEPATITIS C
     Dosage: FORM: BLUE FOOT BALL SHAPED PILLS
     Route: 065
     Dates: start: 20101011, end: 201010
  3. RIBAVIRIN. [Suspect]
     Active Substance: RIBAVIRIN
     Indication: HEPATITIS C
     Dosage: FORM: PILLS, DRUG NAME: ZC19
     Route: 065

REACTIONS (5)
  - White blood cell count decreased [Unknown]
  - Tremor [Not Recovered/Not Resolved]
  - Red blood cell count decreased [Unknown]
  - Feeling abnormal [Unknown]
  - Epistaxis [Not Recovered/Not Resolved]

NARRATIVE: CASE EVENT DATE: 20101208
